FAERS Safety Report 9852602 (Version 1)
Quarter: 2014Q1

REPORT INFORMATION
  Report Type: Spontaneous
  Country: US (occurrence: None)
  Receive Date: 20140128
  Receipt Date: 20140128
  Transmission Date: 20141002
  Serious: Yes (Hospitalization)
  Sender: FDA-Public Use
  Company Number: None

PATIENT
  Age: 68 Year
  Sex: Male
  Weight: 86.18 kg

DRUGS (8)
  1. PRADAXA [Suspect]
     Indication: ATRIAL FIBRILLATION
     Dosage: 60, 2X A DAY, MOUTH
     Route: 048
     Dates: start: 20131222, end: 20140109
  2. WARFARIN [Concomitant]
  3. IMIPRAMINE [Concomitant]
  4. LISINOPRIL [Concomitant]
  5. CARVEDILOL [Concomitant]
  6. CLONAZEPAM [Concomitant]
  7. GABAPENTIN [Concomitant]
  8. TYLENOL [Concomitant]

REACTIONS (5)
  - Insomnia [None]
  - Aphagia [None]
  - Confusional state [None]
  - Speech disorder [None]
  - Chest pain [None]
